FAERS Safety Report 20196177 (Version 1)
Quarter: 2021Q4

REPORT INFORMATION
  Report Type: Report from Study
  Country: IT (occurrence: IT)
  Receive Date: 20211216
  Receipt Date: 20211216
  Transmission Date: 20220303
  Serious: Yes (Other)
  Sender: FDA-Public Use
  Company Number: IT-KYOWAKIRIN-2021BKK020080

PATIENT

DRUGS (1)
  1. CRYSVITA [Suspect]
     Active Substance: BUROSUMAB-TWZA
     Indication: Hypophosphataemic osteomalacia
     Dosage: UNKNOWN, ONE A MONTH
     Route: 058
     Dates: start: 202103

REACTIONS (3)
  - Antiphospholipid syndrome [Unknown]
  - Empty sella syndrome [Unknown]
  - Lymphocytosis [Unknown]

NARRATIVE: CASE EVENT DATE: 20210101
